FAERS Safety Report 8358351-4 (Version None)
Quarter: 2012Q2

REPORT INFORMATION
  Report Type: 
  Country: None (occurrence: None)
  Receive Date: 20120514
  Receipt Date: 20120503
  Transmission Date: 20120825
  Serious: Yes (Other)
  Sender: FDA-Public Use
  Company Number: US-ROCHE-1007151

PATIENT
  Sex: Female

DRUGS (5)
  1. KLONOPIN [Suspect]
     Indication: POOR QUALITY SLEEP
     Route: 048
     Dates: start: 20101004
  2. BUTRANS [Suspect]
     Dosage: 10
     Dates: start: 20110820, end: 20110909
  3. TIZANIDINE [Concomitant]
     Indication: MUSCLE SPASMS
     Route: 048
     Dates: start: 20100621
  4. PERCOCET [Concomitant]
     Indication: PAIN
     Dosage: 5/325
     Dates: start: 20100101
  5. BUTRANS [Suspect]
     Indication: ARTHRALGIA
     Dosage: 10
     Dates: start: 20110418, end: 20110610

REACTIONS (4)
  - SLEEP APNOEA SYNDROME [None]
  - FLUID RETENTION [None]
  - OEDEMA [None]
  - RESPIRATORY DEPRESSION [None]
